FAERS Safety Report 8239921-0 (Version None)
Quarter: 2012Q1

REPORT INFORMATION
  Report Type: 
  Country: None (occurrence: None)
  Receive Date: 20120328
  Receipt Date: 20120319
  Transmission Date: 20120608
  Serious: Yes (Hospitalization)
  Sender: FDA-Public Use
  Company Number: FR-TEVA-328919ISR

PATIENT
  Age: 7 Decade
  Sex: Male

DRUGS (8)
  1. IDARUBICIN HCL [Suspect]
     Indication: ACUTE PROMYELOCYTIC LEUKAEMIA
     Dosage: INDUCTION CHEMOTHERAPY; LATER RECEIVED CONSOLIDATION
     Route: 065
  2. METHOTREXATE [Suspect]
     Indication: ACUTE PROMYELOCYTIC LEUKAEMIA
     Dosage: MAINTENANCE
     Route: 065
     Dates: start: 20080101
  3. TRETINOIN [Suspect]
     Indication: ACUTE PROMYELOCYTIC LEUKAEMIA
     Dosage: INDUCTION CHEMOTHERAPY; LATER RECEIVED MAINTENANCE
     Route: 065
  4. MERCAPTOPURINE [Suspect]
     Indication: ACUTE PROMYELOCYTIC LEUKAEMIA
     Dosage: MAINTENANCE
     Route: 065
     Dates: start: 20080101
  5. TRETINOIN [Suspect]
     Dosage: SEQUENTIAL MAINTENANCE
     Route: 065
  6. IDARUBICIN HCL [Suspect]
     Dosage: 2 CONSOLIDATION COURSES
     Route: 065
  7. CYTARABINE [Suspect]
     Indication: ACUTE PROMYELOCYTIC LEUKAEMIA
     Dosage: INDUCTION CHEMOTHERAPY; LATER RECEIVED CONSOLIDATION
     Route: 065
  8. CYTARABINE [Suspect]
     Dosage: 2 CONSOLIDATION COURSES
     Route: 065

REACTIONS (1)
  - CHRONIC MYELOMONOCYTIC LEUKAEMIA [None]
